FAERS Safety Report 4297262-0 (Version None)
Quarter: 2004Q1

REPORT INFORMATION
  Report Type: 
  Country: None (occurrence: None)
  Receive Date: 20040211
  Receipt Date: 20040202
  Transmission Date: 20041129
  Serious: Yes (Hospitalization)
  Sender: FDA-Public Use
  Company Number: FR-BRISTOL-MYERS SQUIBB COMPANY-12493284

PATIENT
  Age: 49 Year
  Sex: Male

DRUGS (5)
  1. ZERIT [Suspect]
     Route: 048
     Dates: start: 19980401
  2. VIDEX [Suspect]
     Route: 048
     Dates: start: 19980301
  3. ZIAGEN [Suspect]
     Route: 048
     Dates: start: 19990401
  4. VIRAMUNE [Concomitant]
     Dates: start: 19990511
  5. CHOLSTAT [Concomitant]
     Dates: start: 19990801, end: 19990928

REACTIONS (10)
  - ALANINE AMINOTRANSFERASE INCREASED [None]
  - ASTHENIA [None]
  - BLOOD CREATINE PHOSPHOKINASE INCREASED [None]
  - BLOOD LACTIC ACID INCREASED [None]
  - CYTOLYTIC HEPATITIS [None]
  - GAMMA-GLUTAMYLTRANSFERASE INCREASED [None]
  - HEPATIC ENZYME INCREASED [None]
  - INFLUENZA [None]
  - LIPODYSTROPHY ACQUIRED [None]
  - MITOCHONDRIAL CYTOPATHY [None]
